FAERS Safety Report 11633983 (Version 3)
Quarter: 2015Q4

REPORT INFORMATION
  Report Type: Spontaneous
  Country: US (occurrence: US)
  Receive Date: 20151015
  Receipt Date: 20151125
  Transmission Date: 20160304
  Serious: Yes (Death)
  Sender: FDA-Public Use
  Company Number: US-PFIZER INC-2015167299

PATIENT
  Age: 71 Year
  Sex: Male

DRUGS (2)
  1. INLYTA [Suspect]
     Active Substance: AXITINIB
     Indication: METASTATIC RENAL CELL CARCINOMA
     Dosage: 5 MG, 2X/DAY
     Dates: start: 20150109
  2. XGEVA [Concomitant]
     Active Substance: DENOSUMAB
     Dosage: UNK UNK, ONE SHOT ONLY
     Dates: start: 201501, end: 201501

REACTIONS (3)
  - Sepsis [Fatal]
  - Disease progression [Fatal]
  - Metastatic renal cell carcinoma [Fatal]
